FAERS Safety Report 10170138 (Version 3)
Quarter: 2014Q2

REPORT INFORMATION
  Report Type: Spontaneous
  Country: GB (occurrence: GB)
  Receive Date: 20140513
  Receipt Date: 20140609
  Transmission Date: 20141212
  Serious: Yes (Life-Threatening, Other)
  Sender: FDA-Public Use
  Company Number: GB-BAXTER-2014BAX020396

PATIENT
  Age: 78 Year
  Sex: Female
  Weight: 66 kg

DRUGS (4)
  1. HEMOSOL B0 [Suspect]
     Indication: POSTOPERATIVE RENAL FAILURE
     Route: 065
     Dates: start: 20140417
  2. SODIUM CHLORIDE 0.9% INTRAVENOUS INFUSION BP [Suspect]
     Indication: DEVICE PRIMING
     Route: 065
     Dates: start: 20140417
  3. POTASSIUM CHLORIDE [Suspect]
     Indication: PRODUCT USED FOR UNKNOWN INDICATION
     Route: 065
     Dates: start: 20140417, end: 20140417
  4. NORADRENALINE [Concomitant]
     Indication: BLOOD PRESSURE MANAGEMENT
     Route: 065

REACTIONS (3)
  - Blood potassium abnormal [Recovered/Resolved]
  - Cardiac arrest [Recovered/Resolved]
  - Cardiac tamponade [Unknown]
